FAERS Safety Report 24149241 (Version 1)
Quarter: 2024Q3

REPORT INFORMATION
  Report Type: Spontaneous
  Country: GB (occurrence: GB)
  Receive Date: 20240729
  Receipt Date: 20240729
  Transmission Date: 20241016
  Serious: Yes (Life-Threatening, Hospitalization, Other)
  Sender: ABBVIE
  Company Number: GB-JNJFOC-20240762274

PATIENT
  Age: 87 Year
  Sex: Male

DRUGS (1)
  1. IMBRUVICA [Suspect]
     Active Substance: IBRUTINIB
     Indication: Chronic lymphocytic leukaemia
     Route: 048

REACTIONS (3)
  - Cardiac tamponade [Recovered/Resolved]
  - Pericarditis [Recovered/Resolved]
  - Atrial fibrillation [Recovered/Resolved]
